FAERS Safety Report 8190391-0 (Version None)
Quarter: 2012Q1

REPORT INFORMATION
  Report Type: 
  Country: None (occurrence: None)
  Receive Date: 20120305
  Receipt Date: 20120220
  Transmission Date: 20120608
  Serious: Yes (Other)
  Sender: FDA-Public Use
  Company Number: 2012MA002337

PATIENT
  Sex: Female
  Weight: 99.1563 kg

DRUGS (15)
  1. AMITRIPTYLINE HCL [Concomitant]
  2. BACTRIM DS [Concomitant]
  3. ACYCLOVIR [Concomitant]
  4. AMLODIPINE [Concomitant]
  5. DOCUSATE [Concomitant]
  6. PROMETHAZINE W/ CODEINE [Concomitant]
  7. METOCLOPRAMIDE HYDROCHLORIDE [Suspect]
     Indication: NAUSEA
     Dosage: 10 MG,
     Dates: start: 19990101, end: 20100601
  8. METOCLOPRAMIDE HYDROCHLORIDE [Suspect]
     Indication: GASTROOESOPHAGEAL REFLUX DISEASE
     Dosage: 10 MG,
     Dates: start: 19990101, end: 20100601
  9. HYDROCODONE BITARTRATE AND ACETAMINOPHEN [Concomitant]
  10. SINGULAIR [Concomitant]
  11. VITAMIN B-12 [Concomitant]
  12. ALBUTEROL [Concomitant]
  13. INFLUENZA VACCINE [Concomitant]
  14. PHENYTEK [Concomitant]
  15. PRILOSEC [Concomitant]

REACTIONS (9)
  - TREMOR [None]
  - ECONOMIC PROBLEM [None]
  - INJURY [None]
  - TARDIVE DYSKINESIA [None]
  - CHOREA [None]
  - EMOTIONAL DISORDER [None]
  - DYSKINESIA [None]
  - RESTLESS LEGS SYNDROME [None]
  - EXTRAPYRAMIDAL DISORDER [None]
